FAERS Safety Report 8973586 (Version 1)
Quarter: 2012Q4

REPORT INFORMATION
  Report Type: 
  Country: CN (occurrence: CN)
  Receive Date: 20121218
  Receipt Date: 20121218
  Transmission Date: 20130627
  Serious: Yes (Other)
  Sender: FDA-Public Use
  Company Number: PHHY2012CN114213

PATIENT
  Sex: Male

DRUGS (1)
  1. SEBIVO [Suspect]
     Indication: HEPATITIS B
     Dosage: UNK UKN, UNK
     Route: 048
     Dates: start: 20070801, end: 20090623

REACTIONS (8)
  - Renal failure acute [Recovering/Resolving]
  - Syncope [Recovering/Resolving]
  - Loss of consciousness [Recovering/Resolving]
  - Hepatitis C [Recovering/Resolving]
  - Aspartate aminotransferase increased [Recovering/Resolving]
  - Rhabdomyolysis [Unknown]
  - Blood lactic acid increased [Recovering/Resolving]
  - Viral mutation identified [Recovering/Resolving]
